FAERS Safety Report 9113400 (Version 6)
Quarter: 2014Q3

REPORT INFORMATION
  Report Type: Spontaneous
  Country: US (occurrence: US)
  Receive Date: 20130129
  Receipt Date: 20140820
  Transmission Date: 20150326
  Serious: Yes (Hospitalization, Other)
  Sender: FDA-Public Use
  Company Number: US-009507513-1301USA013381

PATIENT
  Sex: Female
  Weight: 58.96 kg

DRUGS (1)
  1. NUVARING [Suspect]
     Active Substance: ETHINYL ESTRADIOL\ETONOGESTREL
     Indication: CONTRACEPTION
     Dosage: UNK
     Route: 067
     Dates: start: 20080702, end: 20090209

REACTIONS (29)
  - Pelvic pain [Unknown]
  - Pulmonary embolism [Unknown]
  - Nodule [Unknown]
  - Exercise tolerance decreased [Unknown]
  - Pleural effusion [Unknown]
  - Pulmonary infarction [Unknown]
  - Flank pain [Unknown]
  - Bulimia nervosa [Unknown]
  - Pulmonary embolism [Unknown]
  - Hepatic mass [Not Recovered/Not Resolved]
  - Mass [Unknown]
  - Menorrhagia [Unknown]
  - Drug intolerance [Unknown]
  - Decreased appetite [Unknown]
  - Neck pain [Unknown]
  - Hepatic lesion [Unknown]
  - Nodule [Unknown]
  - Abdominal mass [Not Recovered/Not Resolved]
  - Dehydration [Unknown]
  - Menstruation irregular [Unknown]
  - Ovarian cyst [Unknown]
  - Abdominal pain [Unknown]
  - Vesicoureteric reflux [Not Recovered/Not Resolved]
  - Adverse drug reaction [Unknown]
  - Migraine [Unknown]
  - Back pain [Unknown]
  - Pulmonary embolism [Unknown]
  - Chest pain [Unknown]
  - Infertility female [Unknown]

NARRATIVE: CASE EVENT DATE: 20090209
